FAERS Safety Report 18197319 (Version 1)
Quarter: 2020Q3

REPORT INFORMATION
  Report Type: Report from Study
  Country: NL (occurrence: NL)
  Receive Date: 20200826
  Receipt Date: 20200826
  Transmission Date: 20201103
  Serious: Yes (Life-Threatening, Hospitalization, Other)
  Sender: FDA-Public Use
  Company Number: NL-ACCORD-197064

PATIENT

DRUGS (2)
  1. CAPECITABINE. [Suspect]
     Active Substance: CAPECITABINE
     Indication: BLADDER CANCER
     Route: 048
  2. MITOMYCIN. [Suspect]
     Active Substance: MITOMYCIN
     Indication: BLADDER CANCER
     Dosage: ON DAY ONE AT A DOSE OF 12 MG/M2?WITH A MAXIMUM DOSE OF 20 MG
     Route: 042

REACTIONS (2)
  - Ileus [Unknown]
  - Off label use [Unknown]
